FAERS Safety Report 9536016 (Version 2)
Quarter: 2013Q4

REPORT INFORMATION
  Report Type: Spontaneous
  Country: US (occurrence: US)
  Receive Date: 20130919
  Receipt Date: 20131007
  Transmission Date: 20140711
  Serious: No
  Sender: FDA-Public Use
  Company Number: US-PFIZER INC-2013264965

PATIENT
  Age: 57 Year
  Sex: Female

DRUGS (16)
  1. XELJANZ [Suspect]
     Indication: STILL^S DISEASE ADULT ONSET
     Dosage: 5 MG, 2X/DAY
     Route: 048
     Dates: start: 20130613
  2. METHOTREXATE [Concomitant]
     Dosage: UNK
  3. TENORETIC [Concomitant]
     Dosage: UNK
  4. FOLIC ACID [Concomitant]
     Dosage: UNK
  5. PLAQUENIL [Concomitant]
     Dosage: UNK
  6. NAPROSYN [Concomitant]
     Dosage: UNK
  7. SYNTHROID [Concomitant]
     Dosage: UNK
  8. OMEPRAZOLE [Concomitant]
     Dosage: UNK
  9. PREDNISONE [Concomitant]
     Dosage: UNK
  10. DIAZIDE [Concomitant]
     Dosage: UNK
  11. DIOVAN [Concomitant]
     Dosage: UNK
  12. PROZAC [Concomitant]
     Dosage: UNK
  13. NASONEX [Concomitant]
     Dosage: UNK
  14. ASTEPRO [Concomitant]
     Dosage: UNK
  15. ALVESCO [Concomitant]
     Dosage: UNK
  16. ZANAFLEX [Concomitant]
     Dosage: UNK

REACTIONS (4)
  - Influenza like illness [Unknown]
  - Headache [Unknown]
  - Fatigue [Unknown]
  - Drug ineffective [Unknown]
